FAERS Safety Report 6150588-8 (Version None)
Quarter: 2009Q2

REPORT INFORMATION
  Report Type: 
  Country: None (occurrence: None)
  Receive Date: 20090408
  Receipt Date: 20090408
  Transmission Date: 20091009
  Serious: Yes (Other)
  Sender: FDA-Public Use
  Company Number: None

PATIENT
  Age: 87 Year
  Sex: Female
  Weight: 59.8748 kg

DRUGS (2)
  1. ZOMIG [Suspect]
     Indication: DRUG DEPENDENCE
     Dosage: 1 PILL AS NEEDED PO
     Route: 048
     Dates: start: 20090319, end: 20090406
  2. ZOMIG [Suspect]
     Indication: MIGRAINE
     Dosage: 1 PILL AS NEEDED PO
     Route: 048
     Dates: start: 20090319, end: 20090406

REACTIONS (1)
  - BLOOD PRESSURE INCREASED [None]
